FAERS Safety Report 9619227 (Version 3)
Quarter: 2013Q4

REPORT INFORMATION
  Report Type: Report from Study
  Country: US (occurrence: US)
  Receive Date: 20131014
  Receipt Date: 20131105
  Transmission Date: 20140711
  Serious: Yes (Hospitalization)
  Sender: FDA-Public Use
  Company Number: US-ROCHE-777543

PATIENT
  Age: 43 Year
  Sex: Female
  Weight: 65 kg

DRUGS (7)
  1. BEVACIZUMAB [Suspect]
     Indication: BREAST CANCER
     Dosage: LAST DOSE PRIOR TO SAE: 23/NOV/2010
     Route: 042
     Dates: start: 20100902, end: 20101123
  2. TRASTUZUMAB [Suspect]
     Indication: BREAST CANCER
     Dosage: LODING DOSE
     Route: 042
     Dates: start: 20100902
  3. TRASTUZUMAB [Suspect]
     Dosage: MAINTAINANCE DOSE: 6MG/KG
     Route: 042
     Dates: start: 20100923
  4. DOCETAXEL [Suspect]
     Indication: BREAST CANCER
     Dosage: FORM:VIAL?LAST DOSE PRIOR TO SAE:16 DEC 2010
     Route: 042
     Dates: start: 20100902, end: 20101216
  5. CARBOPLATIN [Suspect]
     Indication: BREAST CANCER
     Dosage: FORM: VIAL, LAST DOSE PRIOR TO SAE: 16 DEC 2010
     Route: 042
     Dates: start: 20100902, end: 20101216
  6. TRAZODONE [Concomitant]
     Route: 065
  7. CHANTIX [Concomitant]
     Route: 065

REACTIONS (2)
  - Mastitis [Recovered/Resolved]
  - Wound complication [Recovered/Resolved]
